FAERS Safety Report 5247164-8 (Version None)
Quarter: 2007Q1

REPORT INFORMATION
  Report Type: 
  Country: None (occurrence: None)
  Receive Date: 20070221
  Receipt Date: 20070208
  Transmission Date: 20070707
  Serious: Yes (Other)
  Sender: FDA-Public Use
  Company Number: 2007306874

PATIENT
  Age: 65 Year
  Sex: Male
  Weight: 72.6 kg

DRUGS (3)
  1. ROGAINE [Suspect]
     Indication: ALOPECIA
     Dosage: 1 ML TWICE A DAY (2 IN 1 D), TOPICAL
     Route: 061
  2. ROGAINE [Suspect]
     Indication: ALOPECIA
     Dosage: TOPICAL
     Route: 061
  3. TOPROL-XL [Concomitant]

REACTIONS (1)
  - NEOPLASM MALIGNANT [None]
